FAERS Safety Report 17483346 (Version 1)
Quarter: 2020Q1

REPORT INFORMATION
  Report Type: Spontaneous
  Country: US (occurrence: US)
  Receive Date: 20200229
  Receipt Date: 20200229
  Transmission Date: 20200409
  Serious: No
  Sender: FDA-Public Use
  Company Number: None

PATIENT
  Age: 37 Year
  Sex: Female
  Weight: 56.25 kg

DRUGS (3)
  1. DEXTROAMPHET SACCHARAT, AMPHET ASPARTATE, DEXTROAMPHET SULFATE AND AMPHET SULFAT [Suspect]
     Active Substance: AMPHETAMINE ASPARTATE\AMPHETAMINE SULFATE\DEXTROAMPHETAMINE SACCHARATE\DEXTROAMPHETAMINE SULFATE
     Indication: ATTENTION DEFICIT/HYPERACTIVITY DISORDER
     Dosage: ?          QUANTITY:1 TABLET(S);?
     Route: 048
     Dates: start: 20200211, end: 20200229
  2. BIOTIN [Concomitant]
     Active Substance: BIOTIN
  3. VITAMIN D [Concomitant]
     Active Substance: VITAMIN D NOS

REACTIONS (8)
  - Blood pressure increased [None]
  - Paranoia [None]
  - Heart rate increased [None]
  - Anger [None]
  - Tic [None]
  - Treatment failure [None]
  - Drug ineffective [None]
  - Product substitution issue [None]

NARRATIVE: CASE EVENT DATE: 20200229
